FAERS Safety Report 10210373 (Version 2)
Quarter: 2014Q2

REPORT INFORMATION
  Report Type: Report from Study
  Country: US (occurrence: US)
  Receive Date: 20140602
  Receipt Date: 20140602
  Transmission Date: 20141212
  Serious: Yes (Death, Hospitalization)
  Sender: FDA-Public Use
  Company Number: US-DENDREON CORPORATION-2012PROUSA01756

PATIENT
  Age: 72 Year
  Sex: Male
  Weight: 81.18 kg

DRUGS (11)
  1. SIPULEUCEL-T [Suspect]
     Indication: PROSTATE CANCER METASTATIC
     Dosage: 250 ML, SINGLE
     Route: 042
     Dates: start: 20120412, end: 20120412
  2. SIPULEUCEL-T [Suspect]
     Dosage: 250 ML, SINGLE
     Route: 042
     Dates: start: 20120427, end: 20120427
  3. SIPULEUCEL-T [Suspect]
     Dosage: 250 ML, SINGLE
     Route: 042
     Dates: start: 20120511, end: 20120511
  4. OMEPRAZOLE [Concomitant]
     Indication: GASTRIC ULCER
     Dosage: 40 MG, UNK
  5. RISEDRONATE SODIUM [Concomitant]
     Indication: OSTEOPOROSIS
     Dosage: 35 MG, UNK
  6. FLUTICASONE W/SALMETEROL [Concomitant]
     Indication: EMPHYSEMA
     Dosage: 500/50
  7. FLUTICASONE W/SALMETEROL [Concomitant]
     Indication: CHRONIC OBSTRUCTIVE PULMONARY DISEASE
  8. LISINOPRIL [Concomitant]
     Indication: HYPERTENSION
     Dosage: 20 MG, UNK
  9. SIMVASTATIN [Concomitant]
     Indication: HYPERCHOLESTEROLAEMIA
     Dosage: 20 MG, UNK
  10. TIMOLOL MALEATE [Concomitant]
     Indication: HYPERTENSION
     Dosage: .5 UNK, UNK
  11. IBUPROFEN [Concomitant]
     Indication: PAIN
     Dosage: 800 MG, UNK

REACTIONS (1)
  - Cerebrovascular accident [Fatal]
